FAERS Safety Report 9829048 (Version 2)
Quarter: 2014Q1

REPORT INFORMATION
  Report Type: Spontaneous
  Country: FR (occurrence: FR)
  Receive Date: 20140118
  Receipt Date: 20140218
  Transmission Date: 20141002
  Serious: Yes (Hospitalization)
  Sender: FDA-Public Use
  Company Number: FR-ROCHE-1334227

PATIENT
  Sex: Female

DRUGS (5)
  1. MABTHERA [Suspect]
     Indication: PEMPHIGUS
     Dosage: TWICE 15 DAYS APART
     Route: 041
     Dates: start: 201207, end: 201306
  2. MABTHERA [Suspect]
     Route: 065
     Dates: start: 201306
  3. ANAFRANIL [Concomitant]
     Route: 065
  4. SEROPLEX [Concomitant]
     Route: 065
     Dates: start: 2014
  5. GUTRON [Concomitant]
     Indication: ORTHOSTATIC HYPOTENSION

REACTIONS (4)
  - Headache [Recovered/Resolved]
  - Vertigo [Recovered/Resolved]
  - Vomiting [Recovered/Resolved]
  - Nausea [Recovered/Resolved]
